FAERS Safety Report 7099778-0 (Version None)
Quarter: 2010Q4

REPORT INFORMATION
  Report Type: 
  Country: None (occurrence: None)
  Receive Date: 20101112
  Receipt Date: 20101105
  Transmission Date: 20110411
  Serious: Yes (Other)
  Sender: FDA-Public Use
  Company Number: US-US-EMD SERONO, INC.-230322J10USA

PATIENT
  Sex: Female

DRUGS (3)
  1. REBIF [Suspect]
     Indication: MULTIPLE SCLEROSIS
     Route: 058
     Dates: start: 20090917, end: 20100101
  2. REBIF [Suspect]
     Route: 058
     Dates: start: 20100101
  3. H1N1 VACCINE [Suspect]
     Indication: H1N1 INFLUENZA
     Dates: start: 20091210

REACTIONS (8)
  - CHRONIC OBSTRUCTIVE PULMONARY DISEASE [None]
  - DRUG HYPERSENSITIVITY [None]
  - INJECTION SITE PAIN [None]
  - INJECTION SITE REACTION [None]
  - LUNG INFECTION [None]
  - MOTOR DYSFUNCTION [None]
  - NAUSEA [None]
  - PAIN [None]
